FAERS Safety Report 5189966-2 (Version None)
Quarter: 2006Q4

REPORT INFORMATION
  Report Type: 
  Country: None (occurrence: None)
  Receive Date: 20061218
  Receipt Date: 20061130
  Transmission Date: 20070319
  Serious: Yes (Hospitalization)
  Sender: FDA-Public Use
  Company Number: 2006EU003254

PATIENT
  Age: 74 Year
  Sex: Male

DRUGS (9)
  1. VESICARE [Suspect]
     Indication: URINARY INCONTINENCE
     Dosage: 10 MG, UNKNOWN/D, ORAL
     Route: 048
     Dates: start: 20060812, end: 20060927
  2. CETIRIZINE (CETIRIZINE) [Concomitant]
  3. ISRADIPINE [Concomitant]
  4. IMPUGAN (FUROSEMIDE) [Concomitant]
  5. LOSEC (OMEPRAZOLE MAGNESIUM) [Concomitant]
  6. ATENOLOL [Concomitant]
  7. LESCOL CAPSULE [Concomitant]
  8. PLAVIX [Concomitant]
  9. ISOSORBIDMONONITRAT IVAX  (ISOSORBIDE MONONITRATE) [Concomitant]

REACTIONS (2)
  - MALAISE [None]
  - NAUSEA [None]
